FAERS Safety Report 6554166-8 (Version None)
Quarter: 2010Q1

REPORT INFORMATION
  Report Type: 
  Country: None (occurrence: None)
  Receive Date: 20100127
  Receipt Date: 20100115
  Transmission Date: 20100710
  Serious: Yes (Other)
  Sender: FDA-Public Use
  Company Number: US-JNJFOC-20100105695

PATIENT
  Age: 51 Year
  Sex: Female
  Weight: 117.94 kg

DRUGS (7)
  1. TYLENOL (CAPLET) [Suspect]
     Indication: FIBROMYALGIA
     Route: 048
  2. TYLENOL (CAPLET) [Suspect]
     Indication: ARTHRITIS
     Route: 048
  3. MOTRIN [Suspect]
  4. MOTRIN [Suspect]
     Indication: ARTHRITIS
  5. IBUPROFEN (ADVIL) [Suspect]
     Indication: ARTHRITIS
  6. ALEVE (CAPLET) [Suspect]
     Indication: ARTHRITIS
  7. FINACEA [Concomitant]
     Indication: ROSACEA
     Dosage: 2-3 TIMES A DAY

REACTIONS (6)
  - ABDOMINAL DISTENSION [None]
  - DRUG EFFECT DECREASED [None]
  - HELICOBACTER INFECTION [None]
  - INCORRECT DOSE ADMINISTERED [None]
  - PRODUCT QUALITY ISSUE [None]
  - VOMITING [None]
